FAERS Safety Report 4333857-3 (Version None)
Quarter: 2004Q2

REPORT INFORMATION
  Report Type: 
  Country: None (occurrence: None)
  Receive Date: 20040402
  Receipt Date: 20040318
  Transmission Date: 20050107
  Serious: Yes (Other)
  Sender: FDA-Public Use
  Company Number: 04-073-0985-1

PATIENT
  Age: 68 Year
  Sex: Male
  Weight: 86.3 kg

DRUGS (7)
  1. PAMIDRONATE DISODIUM INJECTION [Suspect]
     Indication: MEDICATION ERROR
     Dosage: 0.1 ML (30MG/ML) SQ
     Route: 058
     Dates: start: 20040223
  2. FOLIC ACID [Concomitant]
  3. NORVASC [Concomitant]
  4. FOSAMAX [Concomitant]
  5. CELEBREX [Concomitant]
  6. METHOTREXATE [Concomitant]
  7. ULTRACET [Concomitant]

REACTIONS (8)
  - CYANOSIS [None]
  - INJECTION SITE ERYTHEMA [None]
  - INJECTION SITE RASH [None]
  - INJECTION SITE SWELLING [None]
  - MEDICATION ERROR [None]
  - PRURITUS [None]
  - URTICARIA [None]
  - VASOSPASM [None]
